FAERS Safety Report 10204272 (Version 1)
Quarter: 2014Q2

REPORT INFORMATION
  Report Type: Spontaneous
  Country: IN (occurrence: IN)
  Receive Date: 20140529
  Receipt Date: 20140529
  Transmission Date: 20141212
  Serious: Yes (Hospitalization, Other)
  Sender: FDA-Public Use
  Company Number: IN-WATSON-2014-11546

PATIENT
  Age: 28 Year
  Sex: Male
  Weight: 50 kg

DRUGS (8)
  1. TACROLIMUS (UNKNOWN) [Suspect]
     Indication: IMMUNOSUPPRESSANT DRUG THERAPY
     Dosage: 0.8 MG/KG, UNKNOWN
     Route: 065
  2. MYCOPHENOLATE SODIUM [Concomitant]
     Indication: IMMUNOSUPPRESSANT DRUG THERAPY
     Dosage: 1440 MG, DAILY
     Route: 065
  3. PREDNISOLONE [Concomitant]
     Indication: IMMUNOSUPPRESSANT DRUG THERAPY
     Dosage: 20 MG, DAILY - TAPPERED TO 10 MG/DAY BY THE END OF 3 MONTHS
     Route: 065
  4. FLUCONAZOLE [Concomitant]
     Indication: PRODUCT USED FOR UNKNOWN INDICATION
     Dosage: UNKNOWN
     Route: 065
  5. SULFAMETHOXAZOLE AND TRIMETHOPRIM [Concomitant]
     Indication: INFECTION PROPHYLAXIS
     Dosage: UNKNOWN
     Route: 065
  6. GANCICLOVIR [Concomitant]
     Indication: INFECTION PROPHYLAXIS
     Dosage: UNKNOWN
     Route: 065
  7. METHYLPREDISOLONE [Concomitant]
     Indication: KIDNEY TRANSPLANT REJECTION
     Dosage: 1500 MG, TOTAL
     Route: 042
  8. RITUXIMAB [Concomitant]
     Indication: KIDNEY TRANSPLANT REJECTION
     Dosage: UNKNOWN
     Route: 065

REACTIONS (1)
  - Hepatitis cholestatic [Recovered/Resolved]
